FAERS Safety Report 21714552 (Version 4)
Quarter: 2023Q1

REPORT INFORMATION
  Report Type: Spontaneous
  Country: US (occurrence: US)
  Receive Date: 20221212
  Receipt Date: 20230305
  Transmission Date: 20230418
  Serious: Yes (Other)
  Sender: FDA-Public Use
  Company Number: US-JNJFOC-20221223668

PATIENT
  Age: 87 Year
  Sex: Male

DRUGS (12)
  1. ERLEADA [Suspect]
     Active Substance: APALUTAMIDE
     Indication: Prostate cancer
     Route: 048
     Dates: start: 20220915, end: 20221030
  2. ERLEADA [Suspect]
     Active Substance: APALUTAMIDE
     Route: 048
     Dates: end: 202211
  3. TAMSULOSIN [Concomitant]
     Active Substance: TAMSULOSIN
     Indication: Benign prostatic hyperplasia
     Route: 065
     Dates: start: 1985
  4. ALLOPURINOL [Concomitant]
     Active Substance: ALLOPURINOL
     Indication: Gout
     Route: 065
     Dates: start: 1990
  5. TROSPIUM [Concomitant]
     Active Substance: TROSPIUM
     Indication: Micturition urgency
     Route: 065
     Dates: start: 20221105
  6. NICOTINAMIDE [Concomitant]
     Active Substance: NIACINAMIDE
     Indication: Neoplasm prophylaxis
     Route: 065
     Dates: start: 202206
  7. GEMTESA [Concomitant]
     Active Substance: VIBEGRON
     Indication: Micturition urgency
     Route: 065
     Dates: start: 202201
  8. ELIGARD [Concomitant]
     Active Substance: LEUPROLIDE ACETATE
     Indication: Prostate cancer
     Route: 065
     Dates: start: 2015
  9. PREDNISONE [Concomitant]
     Active Substance: PREDNISONE
     Indication: Product used for unknown indication
     Route: 065
     Dates: start: 2015
  10. KIRKLAND SIGNATURE LAXACLEAR ORIGINAL PRESCRIPTION STRENGTH [Concomitant]
     Active Substance: POLYETHYLENE GLYCOL 3350
     Indication: Constipation
     Route: 065
     Dates: start: 2015
  11. CALCIUM [Concomitant]
     Active Substance: CALCIUM
     Indication: Metastases to bone
     Route: 065
     Dates: start: 2020
  12. ERGOCALCIFEROL [Concomitant]
     Active Substance: ERGOCALCIFEROL
     Indication: Product used for unknown indication
     Route: 065
     Dates: start: 2020

REACTIONS (6)
  - Drug ineffective [Unknown]
  - Oral lichen planus [Recovering/Resolving]
  - Weight decreased [Recovering/Resolving]
  - Somnolence [Unknown]
  - Anaemia [Unknown]
  - Blood creatinine increased [Unknown]

NARRATIVE: CASE EVENT DATE: 20221001
